FAERS Safety Report 5925191-2 (Version None)
Quarter: 2008Q4

REPORT INFORMATION
  Report Type: 
  Country: None (occurrence: None)
  Receive Date: 20081020
  Receipt Date: 20081020
  Transmission Date: 20090506
  Serious: Yes (Other)
  Sender: FDA-Public Use
  Company Number: None

PATIENT
  Age: 42 Year
  Sex: Female
  Weight: 81.6475 kg

DRUGS (1)
  1. ULTRAM [Suspect]
     Indication: MIGRAINE
     Dosage: 1  2X DAILY PO
     Route: 048
     Dates: start: 20080901, end: 20081017

REACTIONS (1)
  - DRUG WITHDRAWAL SYNDROME [None]
